FAERS Safety Report 13983023 (Version 1)
Quarter: 2017Q3

REPORT INFORMATION
  Report Type: Spontaneous
  Country: BR (occurrence: BR)
  Receive Date: 20170918
  Receipt Date: 20170918
  Transmission Date: 20171128
  Serious: Yes (Death, Hospitalization, Other)
  Sender: FDA-Public Use
  Company Number: BR-NOVOPROD-563864

PATIENT
  Age: 15 Year
  Sex: Male

DRUGS (1)
  1. NOVOSEVEN [Suspect]
     Active Substance: COAGULATION FACTOR VIIA RECOMBINANT HUMAN
     Indication: PROPHYLAXIS
     Dosage: UNK (EVERY TWO HOURS FOR 48 HOURS)
     Route: 065

REACTIONS (5)
  - Depressed level of consciousness [Unknown]
  - Coma [Fatal]
  - Brain death [Fatal]
  - Headache [Unknown]
  - Off label use [Unknown]
